FAERS Safety Report 4296553-7 (Version None)
Quarter: 2004Q1

REPORT INFORMATION
  Report Type: 
  Country: None (occurrence: None)
  Receive Date: 20040126
  Receipt Date: 20030825
  Transmission Date: 20041129
  Serious: No
  Sender: FDA-Public Use
  Company Number: USA030845340

PATIENT
  Age: 7 Year
  Sex: Male
  Weight: 33 kg

DRUGS (2)
  1. STRATTERA [Suspect]
     Indication: IMPULSIVE BEHAVIOUR
     Dosage: 40 MG/DAY
     Dates: start: 20030824
  2. VITAMIN CAP [Concomitant]

REACTIONS (3)
  - DECREASED APPETITE [None]
  - HYPERSOMNIA [None]
  - NAUSEA [None]
